FAERS Safety Report 21212968 (Version 1)
Quarter: 2022Q3

REPORT INFORMATION
  Report Type: Spontaneous
  Country: US (occurrence: US)
  Receive Date: 20220815
  Receipt Date: 20220815
  Transmission Date: 20221026
  Serious: No
  Sender: FDA-Public Use
  Company Number: US-BAUSCH-BL-2022-020061

PATIENT
  Sex: Female

DRUGS (2)
  1. ZIRGAN [Suspect]
     Active Substance: GANCICLOVIR
     Indication: Varicella
     Route: 047
     Dates: start: 20220809
  2. ZIRGAN [Suspect]
     Active Substance: GANCICLOVIR
     Indication: Herpes virus infection

REACTIONS (2)
  - Instillation site pain [Recovered/Resolved]
  - Instillation site lacrimation [Recovered/Resolved]

NARRATIVE: CASE EVENT DATE: 20220801
